FAERS Safety Report 7285492-5 (Version None)
Quarter: 2011Q1

REPORT INFORMATION
  Report Type: 
  Country: None (occurrence: None)
  Receive Date: 20110210
  Receipt Date: 20110207
  Transmission Date: 20110831
  Serious: Yes (Death)
  Sender: FDA-Public Use
  Company Number: DE-ABBOTT-11P-062-0703627-00

PATIENT
  Sex: Female

DRUGS (3)
  1. LEFLUNOMIDE [Concomitant]
     Indication: RHEUMATOID ARTHRITIS
     Route: 048
  2. HUMIRA [Suspect]
     Indication: RHEUMATOID ARTHRITIS
     Route: 058
     Dates: start: 20040201
  3. METHOTREXAT [Concomitant]
     Indication: RHEUMATOID ARTHRITIS
     Dosage: 10-15 MG

REACTIONS (1)
  - DEATH [None]
